FAERS Safety Report 9321604 (Version 2)
Quarter: 2013Q3

REPORT INFORMATION
  Report Type: Spontaneous
  Country: GB (occurrence: None)
  Receive Date: 20130529
  Receipt Date: 20130808
  Transmission Date: 20140515
  Serious: Yes (Death)
  Sender: FDA-Public Use
  Company Number: AUR-APL-2013-04271

PATIENT
  Age: 49 Year
  Sex: Male
  Weight: 72 kg

DRUGS (2)
  1. CITALOPRAM (CITALOPRAM) [Suspect]
     Indication: DEPRESSION
     Route: 048
  2. PARACETAMOL (PARACETAMOL) [Concomitant]

REACTIONS (5)
  - Poisoning [None]
  - Pulmonary oedema [None]
  - Hepatic steatosis [None]
  - Varices oesophageal [None]
  - Gastritis [None]
